FAERS Safety Report 6481521-7 (Version None)
Quarter: 2009Q4

REPORT INFORMATION
  Report Type: 
  Country: None (occurrence: None)
  Receive Date: 20091123
  Receipt Date: 20090821
  Transmission Date: 20100525
  Serious: No
  Sender: FDA-Public Use
  Company Number: 8050862

PATIENT
  Age: 41 Year
  Sex: Female

DRUGS (1)
  1. CIMZIA [Suspect]
     Dosage: 400 MG/M SC
     Route: 058
     Dates: start: 20090212

REACTIONS (2)
  - CROHN'S DISEASE [None]
  - FREQUENT BOWEL MOVEMENTS [None]
